FAERS Safety Report 10811257 (Version 1)
Quarter: 2015Q1

REPORT INFORMATION
  Report Type: Report from Study
  Country: US (occurrence: US)
  Receive Date: 20150217
  Receipt Date: 20150217
  Transmission Date: 20150721
  Serious: No
  Sender: FDA-Public Use
  Company Number: US-ABBVIE-14K-163-1269986-00

PATIENT
  Age: 60 Year
  Sex: Female

DRUGS (4)
  1. RISPERDAL [Concomitant]
     Active Substance: RISPERIDONE
     Indication: RESTLESS LEGS SYNDROME
  2. LEVOTHYROXINE [Concomitant]
     Active Substance: LEVOTHYROXINE
     Indication: THYROID DISORDER
  3. CITALOPRAM [Concomitant]
     Active Substance: CITALOPRAM HYDROBROMIDE
     Indication: DEPRESSION
  4. HUMIRA [Suspect]
     Active Substance: ADALIMUMAB
     Indication: CROHN^S DISEASE
     Dates: start: 20140621

REACTIONS (4)
  - Diarrhoea [Not Recovered/Not Resolved]
  - Device issue [Unknown]
  - Drug dose omission [Unknown]
  - Injection site pain [Recovered/Resolved]

NARRATIVE: CASE EVENT DATE: 201408
